FAERS Safety Report 16022993 (Version 2)
Quarter: 2019Q2

REPORT INFORMATION
  Report Type: Spontaneous
  Country: US (occurrence: US)
  Receive Date: 20190301
  Receipt Date: 20190410
  Transmission Date: 20190711
  Serious: Yes (Hospitalization)
  Sender: FDA-Public Use
  Company Number: US-BIOVITRUM-2019US0373

PATIENT
  Age: 14 Year
  Sex: Male
  Weight: 85 kg

DRUGS (1)
  1. ORFADIN [Suspect]
     Active Substance: NITISINONE
     Indication: TYROSINAEMIA
     Dosage: 1MG/KG

REACTIONS (3)
  - Alpha 1 foetoprotein increased [Unknown]
  - Pain [Recovering/Resolving]
  - Inflammatory bowel disease [Recovering/Resolving]

NARRATIVE: CASE EVENT DATE: 201902
